FAERS Safety Report 11926613 (Version 1)
Quarter: 2016Q1

REPORT INFORMATION
  Report Type: Spontaneous
  Country: US (occurrence: US)
  Receive Date: 20160119
  Receipt Date: 20160119
  Transmission Date: 20160526
  Serious: Yes (Other)
  Sender: FDA-Public Use
  Company Number: US-009507513-1601USA004912

PATIENT
  Sex: Female

DRUGS (1)
  1. JANUVIA [Suspect]
     Active Substance: SITAGLIPTIN PHOSPHATE
     Dosage: UNK
     Route: 048

REACTIONS (7)
  - Malaise [Unknown]
  - Pharyngeal oedema [Unknown]
  - Nausea [Unknown]
  - Blood glucose increased [Unknown]
  - Weight decreased [Unknown]
  - Drug ineffective [Unknown]
  - Feeling abnormal [Unknown]
